FAERS Safety Report 5447923-2 (Version None)
Quarter: 2007Q3

REPORT INFORMATION
  Report Type: 
  Country: None (occurrence: None)
  Receive Date: 20070910
  Receipt Date: 20070829
  Transmission Date: 20080115
  Serious: Yes (Other)
  Sender: FDA-Public Use
  Company Number: US-PFIZER INC-2007072223

PATIENT
  Sex: Female

DRUGS (1)
  1. ZITHROMAX [Suspect]
     Route: 042

REACTIONS (4)
  - ARTERIOSPASM CORONARY [None]
  - CATHETERISATION CARDIAC [None]
  - CHEST PAIN [None]
  - CHONDROPATHY [None]
